FAERS Safety Report 4565970-X (Version None)
Quarter: 2005Q1

REPORT INFORMATION
  Report Type: 
  Country: None (occurrence: None)
  Receive Date: 20050128
  Receipt Date: 20050118
  Transmission Date: 20050727
  Serious: Yes (Life-Threatening, Hospitalization)
  Sender: FDA-Public Use
  Company Number: 2004105294

PATIENT
  Age: 46 Year
  Sex: Female
  Weight: 65 kg

DRUGS (11)
  1. AZULFIDINE EN-TABS [Suspect]
     Indication: RHEUMATOID ARTHRITIS
     Dosage: 1000MG(500 MG 1 IN 2 D) ORAL
     Route: 048
     Dates: start: 20040830, end: 20040930
  2. ETIZOLAM             (ETIZOLAM) [Concomitant]
  3. TRIAZOLAM [Concomitant]
  4. SULINDAC [Concomitant]
  5. TEPRENONE            (TEPRENONE) [Concomitant]
  6. ORGAN LYSATE,  STANDARDIZED (ORGAN LYSATE STANDARDIZED) [Concomitant]
  7. PREDNISOLONE [Concomitant]
  8. MISOPROSTOL [Concomitant]
  9. ATORVASTATIN                (ATORVASTATIN) [Concomitant]
  10. CALCIUM CHANNEL BLCOKERS                   (CALCIUM CHANNEL BLOCKERS) [Concomitant]
  11. TRICHLORMETHIAZIDE [Concomitant]

REACTIONS (12)
  - ABDOMINAL MASS [None]
  - ABDOMINAL PAIN [None]
  - ARTHRALGIA [None]
  - COUGH [None]
  - DIARRHOEA [None]
  - DRUG HYPERSENSITIVITY [None]
  - EOSINOPHILIA [None]
  - ERYTHEMA [None]
  - LYMPHADENOPATHY [None]
  - MEASLES [None]
  - PYREXIA [None]
  - RASH [None]
